FAERS Safety Report 19879698 (Version 7)
Quarter: 2021Q4

REPORT INFORMATION
  Report Type: Report from Study
  Country: DE (occurrence: DE)
  Receive Date: 20210924
  Receipt Date: 20211028
  Transmission Date: 20220303
  Serious: Yes (Hospitalization)
  Sender: FDA-Public Use
  Company Number: DE-KARYOPHARM-2021KPT001207

PATIENT
  Age: 57 Year
  Sex: Female
  Weight: 81 kg

DRUGS (23)
  1. SELINEXOR [Suspect]
     Active Substance: SELINEXOR
     Indication: Plasma cell myeloma
     Dosage: 100 MG, WEEKLY
     Route: 048
     Dates: start: 20210831, end: 20210914
  2. VELCADE [Concomitant]
     Active Substance: BORTEZOMIB
     Indication: Plasma cell myeloma
     Dosage: UNK
     Dates: end: 20211019
  3. DEXAMETHASONE [Concomitant]
     Active Substance: DEXAMETHASONE
     Indication: Plasma cell myeloma
     Dosage: UNK
     Dates: end: 20211019
  4. LEVOTHYROXINE SODIUM [Concomitant]
     Active Substance: LEVOTHYROXINE SODIUM
     Dosage: 50 UG, QD
  5. ATORVASTATIN [Concomitant]
     Active Substance: ATORVASTATIN
     Dosage: 20 MG, QD
  6. BISOPROLOL [Concomitant]
     Active Substance: BISOPROLOL
     Dosage: 5 MG, QD
  7. CITALOPRAM [Concomitant]
     Active Substance: CITALOPRAM HYDROBROMIDE
     Dosage: 40 MG, QD
  8. PANTOZOL [Concomitant]
     Active Substance: PANTOPRAZOLE SODIUM
     Dosage: 40 MG, QD
  9. NOVALGIN (METAMIZOLE SODIUM) [Concomitant]
     Active Substance: METAMIZOLE SODIUM
     Dosage: 500 MG, TID
  10. MAGNESIUM DIASPORAL [MAGNESIUM CITRATE] [Concomitant]
     Dosage: UNK, QD
  11. CALCIUM [Concomitant]
     Active Substance: CALCIUM
     Dosage: UNK, QD
  12. VALTREX [Concomitant]
     Active Substance: VALACYCLOVIR HYDROCHLORIDE
     Dosage: 500 MG, BID
  13. COTRIM [Concomitant]
     Active Substance: SULFAMETHOXAZOLE\TRIMETHOPRIM
     Dosage: 960 MG, QD
  14. TRAMADOL [Concomitant]
     Active Substance: TRAMADOL
     Dosage: 50 MG, QD
  15. CHOLECALCIFEROL [Concomitant]
     Active Substance: CHOLECALCIFEROL
     Dosage: 20000 IU, WEEKLY
  16. ALLOPURINOL [Concomitant]
     Active Substance: ALLOPURINOL
     Dosage: 300 MG, QD
  17. ASPIRIN [Concomitant]
     Active Substance: ASPIRIN
     Dosage: 100 MG, QD
  18. AMLODIPINE [Concomitant]
     Active Substance: AMLODIPINE BESYLATE
     Dosage: 5 MG, BID
  19. HYDROCHLOROTHIAZIDE [Concomitant]
     Active Substance: HYDROCHLOROTHIAZIDE
     Dosage: 25 MG, QD
  20. ONDANSETRON [Concomitant]
     Active Substance: ONDANSETRON
     Dosage: 8 HOURS AFTER SELINEXOR DOSE
  21. APREPITANT [Concomitant]
     Active Substance: APREPITANT
     Dosage: 120 MG, DAY 1
  22. APREPITANT [Concomitant]
     Active Substance: APREPITANT
     Dosage: 80 MG, DAY 2 AND 3
  23. MCP [Concomitant]
     Active Substance: METOCLOPRAMIDE HYDROCHLORIDE
     Dosage: 10 MG, TID

REACTIONS (5)
  - Acute kidney injury [Recovered/Resolved]
  - Bronchiolitis [Recovered/Resolved]
  - Thrombocytopenia [Recovered/Resolved]
  - Plasma cell myeloma [Unknown]
  - Vomiting [Recovered/Resolved]

NARRATIVE: CASE EVENT DATE: 20210910
